FAERS Safety Report 5277875-X (Version None)
Quarter: 2007Q1

REPORT INFORMATION
  Report Type: 
  Country: None (occurrence: None)
  Receive Date: 20070327
  Receipt Date: 20070319
  Transmission Date: 20070707
  Serious: Yes (Hospitalization)
  Sender: FDA-Public Use
  Company Number: US-ABBOTT-07P-163-0362585-00

PATIENT
  Sex: Female
  Weight: 68.1 kg

DRUGS (7)
  1. HUMIRA [Suspect]
     Indication: RHEUMATOID ARTHRITIS
     Route: 058
     Dates: start: 20061101, end: 20070131
  2. HUMIRA [Suspect]
     Route: 058
     Dates: start: 20070201
  3. METHOTREXATE [Concomitant]
     Indication: DRUG USE FOR UNKNOWN INDICATION
  4. PREDNISONE [Concomitant]
     Indication: DRUG USE FOR UNKNOWN INDICATION
     Route: 048
  5. BLOOD PRESSURE MEDICATION [Concomitant]
     Indication: BLOOD PRESSURE
  6. THYROID TAB [Concomitant]
     Indication: THYROID DISORDER
  7. ANTIDEPRESSANTS [Concomitant]
     Indication: ANTIDEPRESSANT THERAPY

REACTIONS (2)
  - INJECTION SITE PAIN [None]
  - SHOULDER ARTHROPLASTY [None]
